FAERS Safety Report 17445673 (Version 2)
Quarter: 2020Q1

REPORT INFORMATION
  Report Type: Spontaneous
  Country: GB (occurrence: GB)
  Receive Date: 20200221
  Receipt Date: 20200303
  Transmission Date: 20200409
  Serious: No
  Sender: FDA-Public Use
  Company Number: GB-JNJFOC-20200224999

PATIENT
  Age: 9 Decade
  Sex: Female

DRUGS (1)
  1. RIVAROXABAN [Suspect]
     Active Substance: RIVAROXABAN
     Indication: AORTIC THROMBOSIS
     Dosage: 15 MG, QD
     Route: 048
     Dates: start: 201904

REACTIONS (2)
  - Product use in unapproved indication [Unknown]
  - Off label use [Unknown]
